FAERS Safety Report 8539067-8 (Version None)
Quarter: 2012Q3

REPORT INFORMATION
  Report Type: 
  Country: None (occurrence: None)
  Receive Date: 20120726
  Receipt Date: 20120724
  Transmission Date: 20120928
  Serious: Yes (Death, Other)
  Sender: FDA-Public Use
  Company Number: PHEH2012US013155

PATIENT
  Sex: Male
  Weight: 88.435 kg

DRUGS (4)
  1. ZOMETA [Suspect]
     Indication: METASTASES TO BONE
     Dosage: 3 MG, QMO
     Route: 042
     Dates: start: 20100127, end: 20120515
  2. CASODEX [Concomitant]
     Route: 048
  3. LUPRON [Concomitant]
     Route: 030
  4. TAXOTERE [Concomitant]
     Route: 042

REACTIONS (2)
  - DEATH [None]
  - GENERAL PHYSICAL HEALTH DETERIORATION [None]
